FAERS Safety Report 7423957-3 (Version None)
Quarter: 2011Q2

REPORT INFORMATION
  Report Type: 
  Country: None (occurrence: None)
  Receive Date: 20110419
  Receipt Date: 20110412
  Transmission Date: 20111010
  Serious: Yes (Other)
  Sender: FDA-Public Use
  Company Number: A0923411A

PATIENT
  Sex: Female

DRUGS (1)
  1. AVAMYS [Suspect]
     Indication: RHINITIS
     Dosage: 27.5MCG VARIABLE DOSE
     Route: 045
     Dates: start: 20110325, end: 20110401

REACTIONS (2)
  - ANOSMIA [None]
  - PRODUCT QUALITY ISSUE [None]
